FAERS Safety Report 6406534-2 (Version None)
Quarter: 2009Q4

REPORT INFORMATION
  Report Type: 
  Country: None (occurrence: None)
  Receive Date: 20091019
  Receipt Date: 20091009
  Transmission Date: 20100525
  Serious: Yes (Hospitalization)
  Sender: FDA-Public Use
  Company Number: GB-ABBOTT-09P-167-0602165-00

PATIENT
  Age: 10 Year
  Sex: Female

DRUGS (2)
  1. ERYTHROMYCIN [Suspect]
     Indication: TONSILLITIS
  2. PENICILLIN V [Suspect]
     Indication: TONSILLITIS

REACTIONS (2)
  - ARTHRITIS REACTIVE [None]
  - CLOSTRIDIUM DIFFICILE COLITIS [None]
